FAERS Safety Report 6216603-8 (Version None)
Quarter: 2009Q2

REPORT INFORMATION
  Report Type: 
  Country: None (occurrence: None)
  Receive Date: 20090603
  Receipt Date: 20090603
  Transmission Date: 20091009
  Serious: Yes (Other)
  Sender: FDA-Public Use
  Company Number: None

PATIENT
  Age: 58 Year
  Sex: Female
  Weight: 57.1532 kg

DRUGS (1)
  1. FENTANYL TRANSDERMAL SYSTEM [Suspect]
     Indication: PAIN
     Dosage: 25MCG/HR PATCHES 1 PATCH EVERY 3 DA OTHER
     Route: 050
     Dates: start: 20090528, end: 20090602

REACTIONS (3)
  - HALLUCINATION [None]
  - HYPERHIDROSIS [None]
  - HYPOVENTILATION [None]
